FAERS Safety Report 4367131-6 (Version None)
Quarter: 2004Q2

REPORT INFORMATION
  Report Type: 
  Country: None (occurrence: None)
  Receive Date: 20040528
  Receipt Date: 20040414
  Transmission Date: 20050107
  Serious: Yes (Life-Threatening)
  Sender: FDA-Public Use
  Company Number: JP-GLAXOSMITHKLINE-B0330321A

PATIENT
  Age: 67 Year
  Sex: Female
  Weight: 39 kg

DRUGS (9)
  1. ZANTAC [Suspect]
     Indication: GASTRIC ULCER
     Dosage: 150MG PER DAY
     Route: 048
     Dates: start: 20040228, end: 20040322
  2. DEPAKENE [Suspect]
     Indication: EPILEPSY
     Dosage: 100MG TWICE PER DAY
     Route: 048
     Dates: start: 20040317, end: 20040322
  3. ALEVIATIN [Suspect]
     Indication: EPILEPSY
     Route: 042
     Dates: start: 20040302, end: 20040318
  4. HYDANTOL [Suspect]
     Indication: EPILEPSY
     Dosage: 75MG PER DAY
     Route: 048
     Dates: start: 20040310, end: 20040318
  5. GRAMALIL [Suspect]
     Indication: DEPRESSION
     Dosage: 100MG PER DAY
     Route: 048
     Dates: start: 20040310, end: 20040322
  6. PHENOBAL [Suspect]
     Indication: EPILEPSY
     Dosage: 10MG THREE TIMES PER DAY
     Route: 048
     Dates: start: 20040319, end: 20040322
  7. DORMICUM [Suspect]
     Indication: SEDATION
     Dosage: 120MG PER DAY
     Route: 042
     Dates: start: 20040319, end: 20040326
  8. CORTRIL [Concomitant]
     Indication: HYPOPITUITARISM
     Dosage: 20MG PER DAY
     Route: 048
     Dates: start: 20040308
  9. ZYPREXA [Concomitant]
     Indication: EPILEPSY
     Dosage: 5MG PER DAY
     Route: 048
     Dates: start: 20040305, end: 20040308

REACTIONS (6)
  - AGRANULOCYTOSIS [None]
  - BLOOD ALKALINE PHOSPHATASE INCREASED [None]
  - BLOOD LACTATE DEHYDROGENASE INCREASED [None]
  - GAMMA-GLUTAMYLTRANSFERASE INCREASED [None]
  - HEPATIC FUNCTION ABNORMAL [None]
  - RASH [None]
